FAERS Safety Report 26172775 (Version 1)
Quarter: 2025Q4

REPORT INFORMATION
  Report Type: Spontaneous
  Country: JP (occurrence: JP)
  Receive Date: 20251218
  Receipt Date: 20251218
  Transmission Date: 20260117
  Serious: Yes (Hospitalization, Other)
  Sender: SANOFI AVENTIS
  Company Number: JP-SA-2025SA374703

PATIENT
  Age: 76 Year
  Sex: Male

DRUGS (1)
  1. DUPIXENT [Suspect]
     Active Substance: DUPILUMAB
     Indication: Chronic eosinophilic rhinosinusitis
     Dosage: 300 MG
     Route: 058

REACTIONS (6)
  - Eosinophilic granulomatosis with polyangiitis [Unknown]
  - Peroneal nerve palsy [Unknown]
  - Malaise [Unknown]
  - Headache [Unknown]
  - Decreased appetite [Unknown]
  - Mononeuropathy multiplex [Unknown]
